FAERS Safety Report 21004587 (Version 1)
Quarter: 2022Q2

REPORT INFORMATION
  Report Type: Spontaneous
  Country: CN (occurrence: CN)
  Receive Date: 20220624
  Receipt Date: 20220624
  Transmission Date: 20220721
  Serious: Yes (Other)
  Sender: FDA-Public Use
  Company Number: CN-BAYER-2022A085268

PATIENT
  Age: 73 Year
  Sex: Female

DRUGS (2)
  1. AVELOX [Suspect]
     Active Substance: MOXIFLOXACIN HYDROCHLORIDE
     Indication: Pneumonia
     Dosage: 0.4 G, QD
     Route: 041
     Dates: start: 20220601, end: 20220603
  2. THEOPHYLLINE SODIUM GLYCINATE [Concomitant]
     Active Substance: THEOPHYLLINE SODIUM GLYCINATE
     Indication: Asthma prophylaxis
     Dosage: 0.1 G, TID
     Route: 048
     Dates: start: 20220601, end: 20220603

REACTIONS (3)
  - Mental disorder [Recovered/Resolved]
  - Abnormal behaviour [Recovered/Resolved]
  - Confusional state [Recovered/Resolved]

NARRATIVE: CASE EVENT DATE: 20220604
